FAERS Safety Report 19924591 (Version 8)
Quarter: 2022Q2

REPORT INFORMATION
  Report Type: Spontaneous
  Country: IT (occurrence: IT)
  Receive Date: 20211006
  Receipt Date: 20220621
  Transmission Date: 20220721
  Serious: Yes (Hospitalization, Other)
  Sender: FDA-Public Use
  Company Number: IT-CELGENE-ITA-20210701244

PATIENT
  Age: 79 Year
  Sex: Female

DRUGS (29)
  1. VENETOCLAX [Suspect]
     Active Substance: VENETOCLAX
     Indication: Acute myeloid leukaemia
     Route: 048
     Dates: start: 20210607, end: 20210607
  2. VENETOCLAX [Suspect]
     Active Substance: VENETOCLAX
     Route: 048
     Dates: start: 20210608, end: 20210608
  3. VENETOCLAX [Suspect]
     Active Substance: VENETOCLAX
     Route: 048
     Dates: start: 20210609, end: 20210609
  4. VENETOCLAX [Suspect]
     Active Substance: VENETOCLAX
     Route: 048
     Dates: start: 20210611
  5. AZACITIDINE [Suspect]
     Active Substance: AZACITIDINE
     Indication: Acute myeloid leukaemia
     Route: 065
     Dates: start: 20210607, end: 202206
  6. AZACITIDINE [Suspect]
     Active Substance: AZACITIDINE
     Route: 065
     Dates: start: 20210611
  7. PEVONEDISTAT [Suspect]
     Active Substance: PEVONEDISTAT
     Indication: Acute myeloid leukaemia
     Route: 065
     Dates: start: 20210607
  8. PEVONEDISTAT [Suspect]
     Active Substance: PEVONEDISTAT
     Route: 065
     Dates: start: 20210611
  9. CYANOCOBALAMIN [Suspect]
     Active Substance: CYANOCOBALAMIN
     Indication: Product used for unknown indication
     Route: 065
  10. DOBETIN [Concomitant]
     Indication: Product used for unknown indication
  11. LEVOFLOXACIN [Concomitant]
     Active Substance: LEVOFLOXACIN
     Indication: Product used for unknown indication
  12. COLECALCIFEROL MYLAN [Concomitant]
     Indication: Rheumatoid arthritis
     Dosage: FREQUENCY TEXT: NOT PROVIDED
     Route: 065
  13. KYTRIL [Concomitant]
     Active Substance: GRANISETRON HYDROCHLORIDE
     Indication: Product used for unknown indication
  14. FLUOVITEF [Concomitant]
     Indication: Product used for unknown indication
  15. ALLOPURINOL [Concomitant]
     Active Substance: ALLOPURINOL
     Indication: Product used for unknown indication
  16. PERFALGAN [Concomitant]
     Active Substance: ACETAMINOPHEN
     Indication: Product used for unknown indication
  17. PREDNISONE [Concomitant]
     Active Substance: PREDNISONE
     Indication: Rheumatoid arthritis
     Route: 065
     Dates: end: 20211216
  18. IDEBENONE [Concomitant]
     Active Substance: IDEBENONE
     Indication: Senile dementia
     Route: 065
     Dates: end: 20211216
  19. ELIQUIS [Concomitant]
     Active Substance: APIXABAN
     Indication: Prophylaxis
     Route: 065
     Dates: start: 20210826, end: 20211216
  20. ACYCLOVIR [Concomitant]
     Active Substance: ACYCLOVIR
     Indication: Prophylaxis
     Route: 065
     Dates: start: 20210526
  21. COLECALCIFEROLO MYLAN [Concomitant]
     Indication: Rheumatoid arthritis
     Dosage: FREQUENCY TEXT: NOT PROVIDED
  22. AMLODIPINE BESYLATE [Concomitant]
     Active Substance: AMLODIPINE BESYLATE
     Indication: Hypertension
     Dosage: FREQUENCY TEXT: NOT PROVIDE
     Route: 065
     Dates: start: 20210815
  23. APIXABAN [Concomitant]
     Active Substance: APIXABAN
     Indication: Atrial fibrillation
     Route: 065
  24. ALLOPURINOL [Concomitant]
     Active Substance: ALLOPURINOL
     Indication: Prophylaxis
     Route: 065
     Dates: start: 20210528, end: 20211221
  25. FLUCONAZOLE [Concomitant]
     Active Substance: FLUCONAZOLE
     Indication: Prophylaxis
     Route: 065
     Dates: start: 20210526
  26. PANTOPRAZOLE SODIUM [Concomitant]
     Active Substance: PANTOPRAZOLE SODIUM
     Indication: Gastrointestinal disorder prophylaxis
     Route: 065
     Dates: start: 20210516
  27. LEVOFLOXACIN [Concomitant]
     Active Substance: LEVOFLOXACIN
     Indication: Product used for unknown indication
  28. IDEBENONE [Concomitant]
     Active Substance: IDEBENONE
     Indication: Senile dementia
     Dates: start: 20211216
  29. GRANISETRON HYDROCHLORIDE [Concomitant]
     Active Substance: GRANISETRON HYDROCHLORIDE
     Indication: Product used for unknown indication

REACTIONS (4)
  - Device related infection [Recovered/Resolved]
  - Arthritis bacterial [Recovered/Resolved]
  - Arthritis infective [Recovered/Resolved]
  - Febrile neutropenia [Recovered/Resolved]

NARRATIVE: CASE EVENT DATE: 20210628
